FAERS Safety Report 4452969-7 (Version None)
Quarter: 2004Q3

REPORT INFORMATION
  Report Type: 
  Country: None (occurrence: None)
  Receive Date: 20040916
  Receipt Date: 20040901
  Transmission Date: 20050211
  Serious: Yes (Death)
  Sender: FDA-Public Use
  Company Number: 2004-BP-07545RO

PATIENT
  Age: 69 Year
  Sex: Male

DRUGS (2)
  1. DEXAMETHASONE [Suspect]
     Indication: MULTIPLE MYELOMA
     Dosage: CYCLIC 40 MG, PO
     Route: 048
     Dates: start: 20011008, end: 20011220
  2. THALIDOMIDE (THALIDOMIDE) [Concomitant]

REACTIONS (2)
  - BLOOD IMMUNOGLOBULIN G INCREASED [None]
  - MONOCLONAL IMMUNOGLOBULIN PRESENT [None]
